FAERS Safety Report 7904527-7 (Version None)
Quarter: 2011Q4

REPORT INFORMATION
  Report Type: 
  Country: None (occurrence: None)
  Receive Date: 20111109
  Receipt Date: 20111028
  Transmission Date: 20120403
  Serious: Yes (Hospitalization)
  Sender: FDA-Public Use
  Company Number: US-BAYER-2011-034562

PATIENT
  Age: 23 Year
  Sex: Female

DRUGS (6)
  1. ALLEGRA [Concomitant]
     Dosage: 180 MG, QD
  2. YAZ [Suspect]
     Indication: MENSTRUAL CYCLE MANAGEMENT
  3. ORTHO TRI-CYCLEN LO [Concomitant]
     Dosage: UNK UNK, QD
     Dates: start: 20080107
  4. FOSINOPRIL SODIUM [Concomitant]
     Dosage: 40 MG, QD
     Route: 048
  5. YAZ [Suspect]
     Indication: OVARIAN CYST
     Dosage: UNK
     Dates: start: 20060501, end: 20070501
  6. TAZTIA XL [Concomitant]
     Dosage: 180 MG, QD

REACTIONS (3)
  - PULMONARY EMBOLISM [None]
  - PAIN [None]
  - INJURY [None]
